FAERS Safety Report 16778782 (Version 1)
Quarter: 2019Q3

REPORT INFORMATION
  Report Type: Spontaneous
  Country: JP (occurrence: JP)
  Receive Date: 20190906
  Receipt Date: 20190906
  Transmission Date: 20191005
  Serious: Yes (Other)
  Sender: FDA-Public Use
  Company Number: JP-SAKK-2019SA242289AA

PATIENT
  Age: 87 Year
  Sex: Male

DRUGS (1)
  1. PLAVIX [Suspect]
     Active Substance: CLOPIDOGREL BISULFATE
     Indication: PROPHYLAXIS
     Dosage: DAILY DOSE: 50 MG
     Route: 048

REACTIONS (4)
  - Creatinine renal clearance decreased [Unknown]
  - Language disorder [Unknown]
  - Cerebral infarction [Unknown]
  - Abnormal behaviour [Unknown]
